FAERS Safety Report 24022651 (Version 5)
Quarter: 2024Q3

REPORT INFORMATION
  Report Type: Report from Study
  Country: AU (occurrence: AU)
  Receive Date: 20240627
  Receipt Date: 20240710
  Transmission Date: 20241017
  Serious: No
  Sender: ROCHE
  Company Number: AU-ROCHE-3342920

PATIENT
  Age: 45 Year
  Sex: Female
  Weight: 50.3 kg

DRUGS (4)
  1. ALECTINIB [Suspect]
     Active Substance: ALECTINIB
     Indication: Non-small cell lung cancer metastatic
     Route: 048
     Dates: start: 20211018
  2. PROMENSIL [Concomitant]
     Indication: Night sweats
     Dosage: DRUG DOSE FIRST ADMINISTERED IS 1 TABLET ;ONGOING: NO
     Route: 048
     Dates: start: 202110, end: 202111
  3. SENNA [Concomitant]
     Active Substance: SENNA LEAF\SENNOSIDES\SENNOSIDES A AND B
     Indication: Constipation
     Dosage: 1 TABLET? FREQUENCY TEXT:PRN
     Dates: start: 20230830
  4. MOVICOL [Concomitant]
     Active Substance: POLYETHYLENE GLYCOL 3350\POTASSIUM CHLORIDE\SODIUM BICARBONATE\SODIUM CHLORIDE
     Indication: Constipation
     Dosage: DOSE: 1 OTHER
     Dates: start: 202403

REACTIONS (2)
  - Menopausal symptoms [Recovering/Resolving]
  - Anaemia [Recovering/Resolving]

NARRATIVE: CASE EVENT DATE: 20211101
